FAERS Safety Report 7972203 (Version 34)
Quarter: 2015Q4

REPORT INFORMATION
  Report Type: Spontaneous
  Country: CA (occurrence: CA)
  Receive Date: 20110602
  Receipt Date: 20151127
  Transmission Date: 20160305
  Serious: Yes (Hospitalization, Other)
  Sender: FDA-Public Use
  Company Number: CA-ROCHE-GNE319561

PATIENT
  Age: 44 Year
  Sex: Female

DRUGS (12)
  1. XOLAIR [Suspect]
     Active Substance: OMALIZUMAB
     Route: 058
     Dates: start: 20141016
  2. SINGULAIR [Concomitant]
     Active Substance: MONTELUKAST SODIUM
     Indication: PRODUCT USED FOR UNKNOWN INDICATION
  3. XOLAIR [Suspect]
     Active Substance: OMALIZUMAB
     Route: 058
     Dates: start: 20151015
  4. XOLAIR [Suspect]
     Active Substance: OMALIZUMAB
     Route: 058
     Dates: start: 20151118
  5. XOLAIR [Suspect]
     Active Substance: OMALIZUMAB
     Route: 058
     Dates: start: 20130116
  6. XOLAIR [Suspect]
     Active Substance: OMALIZUMAB
     Route: 058
     Dates: start: 20150902
  7. XOLAIR [Suspect]
     Active Substance: OMALIZUMAB
     Route: 058
     Dates: start: 20120524
  8. SYMBICORT [Concomitant]
     Active Substance: BUDESONIDE\FORMOTEROL FUMARATE DIHYDRATE
     Indication: PRODUCT USED FOR UNKNOWN INDICATION
     Dosage: UNK
     Route: 065
  9. SPIRIVA [Concomitant]
     Active Substance: TIOTROPIUM BROMIDE MONOHYDRATE
     Indication: PRODUCT USED FOR UNKNOWN INDICATION
     Dosage: UNK
     Route: 065
  10. XOLAIR [Suspect]
     Active Substance: OMALIZUMAB
     Indication: ASTHMA
     Route: 058
     Dates: start: 20110406
  11. XOLAIR [Suspect]
     Active Substance: OMALIZUMAB
     Route: 058
     Dates: start: 20150806
  12. CARDIZEM [Concomitant]
     Active Substance: DILTIAZEM HYDROCHLORIDE
     Indication: PRODUCT USED FOR UNKNOWN INDICATION
     Dosage: UNK
     Route: 065

REACTIONS (35)
  - Hypersensitivity [Recovering/Resolving]
  - Throat irritation [Recovering/Resolving]
  - Chest discomfort [Recovering/Resolving]
  - Asthma [Recovering/Resolving]
  - Viral infection [Unknown]
  - Alopecia [Recovering/Resolving]
  - Fatigue [Recovering/Resolving]
  - Wheezing [Recovering/Resolving]
  - Pharyngitis [Unknown]
  - Vertigo [Unknown]
  - Breast discomfort [Recovering/Resolving]
  - Pigmentation disorder [Unknown]
  - Respiratory disorder [Unknown]
  - Oropharyngeal pain [Recovering/Resolving]
  - Dry throat [Recovering/Resolving]
  - Inappropriate schedule of drug administration [Unknown]
  - Sinusitis [Unknown]
  - Upper respiratory tract infection [Recovering/Resolving]
  - Palpitations [Recovering/Resolving]
  - Malaise [Recovering/Resolving]
  - Scab [Recovering/Resolving]
  - Injection site swelling [Unknown]
  - Dizziness [Recovering/Resolving]
  - Urticaria [Not Recovered/Not Resolved]
  - Dyspnoea at rest [Recovering/Resolving]
  - Oral herpes [Recovering/Resolving]
  - Poor quality sleep [Recovering/Resolving]
  - Weight decreased [Unknown]
  - Headache [Recovering/Resolving]
  - Nasopharyngitis [Unknown]
  - Chest pain [Unknown]
  - Lower respiratory tract infection [Unknown]
  - Arthralgia [Recovering/Resolving]
  - Nausea [Recovering/Resolving]
  - Cough [Recovering/Resolving]

NARRATIVE: CASE EVENT DATE: 20110406
